FAERS Safety Report 8217602-7 (Version None)
Quarter: 2012Q1

REPORT INFORMATION
  Report Type: 
  Country: None (occurrence: None)
  Receive Date: 20120319
  Receipt Date: 20120319
  Transmission Date: 20120608
  Serious: Yes (Other)
  Sender: FDA-Public Use
  Company Number: None

PATIENT
  Age: 36 Year
  Sex: Female

DRUGS (1)
  1. PANTOPRAZOLE [Suspect]
     Route: 048
     Dates: start: 20120301, end: 20120303

REACTIONS (2)
  - ARTHRALGIA [None]
  - HYPOAESTHESIA [None]
